FAERS Safety Report 9015966 (Version 1)
Quarter: 2013Q1

REPORT INFORMATION
  Report Type: Spontaneous
  Country: US (occurrence: US)
  Receive Date: 20130116
  Receipt Date: 20130116
  Transmission Date: 20140127
  Serious: Yes (Other)
  Sender: FDA-Public Use
  Company Number: US-009507513-1301XAA004122

PATIENT
  Age: 1 Year
  Sex: Female

DRUGS (2)
  1. SINGULAIR [Suspect]
     Indication: BRONCHITIS
     Route: 048
  2. FLIXOTIDE [Suspect]
     Dosage: 1 PUFF PER DAY
     Route: 055

REACTIONS (1)
  - Erythema multiforme [Unknown]
